FAERS Safety Report 6903468-1 (Version None)
Quarter: 2010Q3

REPORT INFORMATION
  Report Type: 
  Country: None (occurrence: None)
  Receive Date: 20100803
  Receipt Date: 20081008
  Transmission Date: 20110219
  Serious: No
  Sender: FDA-Public Use
  Company Number: US-PFIZER INC-2008084696

PATIENT
  Sex: Male
  Weight: 93.2 kg

DRUGS (6)
  1. LYRICA [Suspect]
     Indication: NEUROPATHY PERIPHERAL
     Route: 048
     Dates: start: 20080201
  2. TYLENOL [Suspect]
     Indication: PAIN MANAGEMENT
     Dates: start: 20080901
  3. COREG [Concomitant]
  4. COZAAR [Concomitant]
  5. ZETIA [Concomitant]
  6. OMEPRAZOLE [Concomitant]

REACTIONS (3)
  - DIZZINESS [None]
  - PAIN [None]
  - SOMNOLENCE [None]
